FAERS Safety Report 6050463-3 (Version None)
Quarter: 2009Q1

REPORT INFORMATION
  Report Type: 
  Country: None (occurrence: None)
  Receive Date: 20090126
  Receipt Date: 20090115
  Transmission Date: 20090719
  Serious: Yes (Other)
  Sender: FDA-Public Use
  Company Number: PHHY2009GB01866

PATIENT
  Sex: Male

DRUGS (3)
  1. BACLOFEN [Suspect]
     Dosage: UNK
  2. OPIOIDS [Concomitant]
  3. GABAPENTIN [Concomitant]

REACTIONS (2)
  - DRUG DOSE OMISSION [None]
  - LOSS OF CONSCIOUSNESS [None]
